FAERS Safety Report 21618573 (Version 1)
Quarter: 2022Q4

REPORT INFORMATION
  Report Type: Spontaneous
  Country: CN (occurrence: CN)
  Receive Date: 20221119
  Receipt Date: 20221119
  Transmission Date: 20230113
  Serious: Yes (Other)
  Sender: FDA-Public Use
  Company Number: None

PATIENT
  Age: 64 Year
  Sex: Female
  Weight: 62 kg

DRUGS (6)
  1. CYCLOPHOSPHAMIDE [Suspect]
     Active Substance: CYCLOPHOSPHAMIDE
     Indication: Breast cancer female
     Dosage: 0.8 G, QD, DILUTED WITH 500 ML OF 0.9% SODIUM CHLORIDE.
     Route: 041
     Dates: start: 20221017, end: 20221017
  2. SODIUM CHLORIDE [Suspect]
     Active Substance: SODIUM CHLORIDE
     Indication: Medication dilution
     Dosage: 500 ML, QD, USED TO DILUTE 0.8 G OF CYCLOPHOSPHAMIDE.
     Route: 041
     Dates: start: 20221017, end: 20221017
  3. SODIUM CHLORIDE [Suspect]
     Active Substance: SODIUM CHLORIDE
     Dosage: 250 ML, QD, USED TO DILUTE 120 MG OF DOCETAXEL.
     Route: 041
     Dates: start: 20221017, end: 20221017
  4. SODIUM CHLORIDE [Suspect]
     Active Substance: SODIUM CHLORIDE
     Dosage: 250 ML, QD, USED TO DILUTE 130 MG OF EPIRUBICIN.
     Route: 041
     Dates: start: 20221017, end: 20221017
  5. DOCETAXEL [Suspect]
     Active Substance: DOCETAXEL
     Indication: Breast cancer female
     Dosage: 120 MG, QD, DILUTED WITH 250 ML OF 0.9% SODIUM CHLORIDE.
     Route: 041
     Dates: start: 20221017, end: 20221017
  6. EPIRUBICIN HYDROCHLORIDE [Suspect]
     Active Substance: EPIRUBICIN HYDROCHLORIDE
     Indication: Breast cancer female
     Dosage: 130 MG, QD, DILUTED WITH 250 ML OF 0.9% SODIUM CHLORIDE.
     Route: 041
     Dates: start: 20221017, end: 20221017

REACTIONS (2)
  - White blood cell count decreased [Recovered/Resolved]
  - Neutrophil count decreased [Recovered/Resolved]

NARRATIVE: CASE EVENT DATE: 20221026
